FAERS Safety Report 7440745-2 (Version None)
Quarter: 2011Q2

REPORT INFORMATION
  Report Type: 
  Country: None (occurrence: None)
  Receive Date: 20110427
  Receipt Date: 20110418
  Transmission Date: 20111010
  Serious: Yes (Other)
  Sender: FDA-Public Use
  Company Number: BR-ASTRAZENECA-2011SE22403

PATIENT
  Age: 73 Year
  Sex: Female

DRUGS (5)
  1. FLUIMUCIL [Concomitant]
     Indication: CHRONIC OBSTRUCTIVE PULMONARY DISEASE
     Route: 048
     Dates: start: 20110411, end: 20110413
  2. SYMBICORT [Suspect]
     Dosage: 80/4.5MCG BID
     Route: 055
     Dates: start: 20110411
  3. LEVOFLOXACIN [Concomitant]
     Route: 048
     Dates: start: 20110411
  4. SYMBICORT [Suspect]
     Indication: CHRONIC OBSTRUCTIVE PULMONARY DISEASE
     Dosage: 320/9MCG BID
     Route: 055
     Dates: start: 20110411
  5. FLUIMUCIL [Concomitant]
     Route: 048

REACTIONS (3)
  - DRUG DISPENSING ERROR [None]
  - BRONCHOSPASM [None]
  - ABDOMINAL PAIN UPPER [None]
